FAERS Safety Report 11401548 (Version 3)
Quarter: 2015Q3

REPORT INFORMATION
  Report Type: Report from Study
  Country: US (occurrence: US)
  Receive Date: 20150821
  Receipt Date: 20150913
  Transmission Date: 20151125
  Serious: Yes (Other)
  Sender: FDA-Public Use
  Company Number: US-AMGEN-USASL2015082721

PATIENT
  Age: 71 Year
  Sex: Male

DRUGS (1)
  1. ENBREL [Suspect]
     Active Substance: ETANERCEPT
     Indication: PSORIATIC ARTHROPATHY
     Dosage: 50 MG, QWK
     Route: 065

REACTIONS (7)
  - Peripheral swelling [Unknown]
  - Pain [Unknown]
  - Renal impairment [Unknown]
  - Dyspnoea [Unknown]
  - Dysphagia [Unknown]
  - Gait disturbance [Unknown]
  - Pain in extremity [Unknown]
